FAERS Safety Report 9292688 (Version 1)
Quarter: 2013Q2

REPORT INFORMATION
  Report Type: Spontaneous
  Country: US (occurrence: None)
  Receive Date: 20130515
  Receipt Date: 20130515
  Transmission Date: 20140414
  Serious: Yes (Other)
  Sender: FDA-Public Use
  Company Number: None

PATIENT
  Age: 3 Year
  Sex: Male
  Weight: 16.78 kg

DRUGS (1)
  1. NEUTROGENA PURE AND FREE BABY SUNBLOCK SPF 60PLUS PURESCREEN [Suspect]
     Dosage: USED ON FACE AND EARS  1 TIME
     Dates: start: 20130428

REACTIONS (4)
  - Erythema [None]
  - Ear swelling [None]
  - Erythema [None]
  - Swelling face [None]
